FAERS Safety Report 16084920 (Version 1)
Quarter: 2019Q1

REPORT INFORMATION
  Report Type: Report from Study
  Country: IE (occurrence: IE)
  Receive Date: 20190318
  Receipt Date: 20190318
  Transmission Date: 20190418
  Serious: Yes (Other)
  Sender: FDA-Public Use
  Company Number: IE-JNJFOC-20190310333

PATIENT
  Sex: Female

DRUGS (6)
  1. STELARA [Suspect]
     Active Substance: USTEKINUMAB
     Indication: PSORIASIS
     Route: 058
     Dates: start: 20140709
  2. FYBOGEL [Concomitant]
     Active Substance: PLANTAGO OVATA SEED
     Route: 050
  3. PARACETMOL [Concomitant]
     Active Substance: ACETAMINOPHEN
     Route: 050
  4. LOSARTAN. [Concomitant]
     Active Substance: LOSARTAN
     Route: 050
  5. MOREPA [Concomitant]
     Route: 050
  6. SOLPADEINE [Concomitant]
     Route: 050

REACTIONS (1)
  - Dementia [Not Recovered/Not Resolved]
